FAERS Safety Report 9891682 (Version 4)
Quarter: 2014Q2

REPORT INFORMATION
  Report Type: Report from Study
  Country: CA (occurrence: CA)
  Receive Date: 20140212
  Receipt Date: 20140624
  Transmission Date: 20141212
  Serious: Yes (Other)
  Sender: FDA-Public Use
  Company Number: PHHY2014CA012264

PATIENT
  Age: 67 Year
  Sex: Male

DRUGS (2)
  1. SANDOSTATIN LAR [Suspect]
     Indication: CARCINOID TUMOUR
     Dosage: 20 MG, EVERY FOUR WEEKS
     Route: 030
     Dates: start: 20090601, end: 201111
  2. SANDOSTATIN LAR [Suspect]
     Dosage: 30 MG, EVERY 30 DAYS
     Route: 030

REACTIONS (5)
  - Blood pressure decreased [Unknown]
  - Dehydration [Unknown]
  - Skin turgor decreased [Unknown]
  - Disease progression [Unknown]
  - Heart rate increased [Unknown]
